FAERS Safety Report 25392082 (Version 1)
Quarter: 2025Q2

REPORT INFORMATION
  Report Type: Spontaneous
  Country: IT (occurrence: IT)
  Receive Date: 20250603
  Receipt Date: 20250603
  Transmission Date: 20250716
  Serious: Yes (Other)
  Sender: MYLAN
  Company Number: None

PATIENT
  Age: 82 Year
  Sex: Female

DRUGS (5)
  1. XANAX [Suspect]
     Active Substance: ALPRAZOLAM
     Indication: Anxiety
     Dosage: 10 GTT DROPS, TID (10 DROPS AT 8:00 AM-12:00 PM-08:00 PM DAILY)
     Dates: start: 2015
  2. CLARITHROMYCIN [Suspect]
     Active Substance: CLARITHROMYCIN
     Indication: Respiratory tract infection
     Dosage: 250 MILLIGRAM, BID (250 MG EVERY 12 HOURS DAILY)
     Dates: start: 20250509, end: 20250511
  3. PAROXETINE HYDROCHLORIDE [Suspect]
     Active Substance: PAROXETINE HYDROCHLORIDE
     Indication: Depression
     Dosage: 10 GTT DROPS, QD (10 DROPS DAILY)
     Dates: start: 2015
  4. ESOMEPRAZOLE [Concomitant]
     Active Substance: ESOMEPRAZOLE
     Indication: Gastritis erosive
     Dosage: 20 MILLIGRAM, QD (20 MG DAILY)
     Dates: start: 2015
  5. VENTOLIN [Concomitant]
     Active Substance: ALBUTEROL SULFATE
     Indication: Chronic obstructive pulmonary disease

REACTIONS (2)
  - Hyperpyrexia [Recovering/Resolving]
  - Rash [Recovering/Resolving]

NARRATIVE: CASE EVENT DATE: 20250509
